FAERS Safety Report 11456389 (Version 2)
Quarter: 2015Q3

REPORT INFORMATION
  Report Type: Spontaneous
  Country: US (occurrence: None)
  Receive Date: 20150903
  Receipt Date: 20150916
  Transmission Date: 20151125
  Serious: Yes (Other)
  Sender: FDA-Public Use
  Company Number: ADR-2014-00089

PATIENT
  Sex: Female

DRUGS (1)
  1. LIORESAL [Suspect]
     Active Substance: BACLOFEN
     Dosage: 199.9 MCG/DAY

REACTIONS (5)
  - Therapeutic response unexpected [None]
  - Weight decreased [None]
  - Incorrect route of drug administration [None]
  - Muscle spasms [None]
  - Lethargy [None]
